FAERS Safety Report 7057188-6 (Version None)
Quarter: 2010Q4

REPORT INFORMATION
  Report Type: 
  Country: None (occurrence: None)
  Receive Date: 20101022
  Receipt Date: 20101014
  Transmission Date: 20110411
  Serious: Yes (Hospitalization)
  Sender: FDA-Public Use
  Company Number: US-WYE-H18184910

PATIENT
  Sex: Male

DRUGS (3)
  1. RAPAMUNE [Suspect]
     Dosage: UNSPECIFIED
  2. ACICLOVIR [Suspect]
     Indication: HERPES VIRUS INFECTION
  3. ACICLOVIR [Suspect]
     Indication: STOMATITIS

REACTIONS (4)
  - HERPES VIRUS INFECTION [None]
  - RENAL FAILURE [None]
  - RESPIRATORY FAILURE [None]
  - STOMATITIS [None]
